FAERS Safety Report 4602973-0 (Version None)
Quarter: 2005Q1

REPORT INFORMATION
  Report Type: 
  Country: None (occurrence: None)
  Receive Date: 20050307
  Receipt Date: 20050218
  Transmission Date: 20050727
  Serious: Yes (Hospitalization)
  Sender: FDA-Public Use
  Company Number: 10337

PATIENT
  Age: 46 Year
  Sex: Female

DRUGS (2)
  1. AMIODARONE HCL [Suspect]
     Indication: VENTRICULAR TACHYCARDIA
  2. CHLORPHENIRAMINE MALEATE [Concomitant]

REACTIONS (7)
  - ANXIETY [None]
  - DEPRESSION [None]
  - DRUG INEFFECTIVE [None]
  - ELECTROCARDIOGRAM ST-T SEGMENT ABNORMAL [None]
  - HYPOKALAEMIA [None]
  - SUICIDAL IDEATION [None]
  - VENTRICULAR TACHYCARDIA [None]
